FAERS Safety Report 21600427 (Version 1)
Quarter: 2022Q4

REPORT INFORMATION
  Report Type: Spontaneous
  Country: CN (occurrence: CN)
  Receive Date: 20221116
  Receipt Date: 20221116
  Transmission Date: 20230113
  Serious: Yes (Death, Hospitalization)
  Sender: FDA-Public Use
  Company Number: CN-STRIDES ARCOLAB LIMITED-2022SP015313

PATIENT
  Age: 44 Year
  Sex: Male

DRUGS (2)
  1. FLUCYTOSINE [Suspect]
     Active Substance: FLUCYTOSINE
     Indication: Disseminated cryptococcosis
     Dosage: 2.5 GRAM, EVERY 12 HRS
     Route: 065
  2. AMPHOTERICIN B [Suspect]
     Active Substance: AMPHOTERICIN B
     Indication: Disseminated cryptococcosis
     Dosage: 0.7 MILLIGRAM/KILOGRAM PER DAY
     Route: 065

REACTIONS (1)
  - Drug ineffective [Fatal]
